FAERS Safety Report 5261279-X (Version None)
Quarter: 2007Q1

REPORT INFORMATION
  Report Type: 
  Country: None (occurrence: None)
  Receive Date: 20070309
  Receipt Date: 20070301
  Transmission Date: 20070707
  Serious: Yes (Other)
  Sender: FDA-Public Use
  Company Number: US-PFIZER INC-2007017038

PATIENT
  Sex: Male
  Weight: 81.6 kg

DRUGS (4)
  1. CHANTIX [Suspect]
     Indication: EX-SMOKER
     Dosage: FREQ:DAILY
  2. PAXIL [Concomitant]
     Indication: DEPRESSION
     Dosage: TEXT:50MG-FREQ:DAILY
  3. REMERON [Concomitant]
  4. TRICOR [Concomitant]

REACTIONS (1)
  - DEPRESSION [None]
